FAERS Safety Report 24648890 (Version 1)
Quarter: 2024Q4

REPORT INFORMATION
  Report Type: Spontaneous
  Country: US (occurrence: US)
  Receive Date: 20241121
  Receipt Date: 20241121
  Transmission Date: 20250115
  Serious: Yes (Other)
  Sender: ACERUS PHARMACEUTICALS CORPORATION
  Company Number: US-ACERUSPHRM-2024-US-000042

PATIENT
  Age: 33 Year

DRUGS (2)
  1. TESTOSTERONE [Suspect]
     Active Substance: TESTOSTERONE
     Indication: Product used for unknown indication
     Dates: start: 2009
  2. ACETAZOLAMIDE [Concomitant]
     Active Substance: ACETAZOLAMIDE
     Indication: Product used for unknown indication

REACTIONS (3)
  - Cerebrospinal fluid leakage [Unknown]
  - Idiopathic intracranial hypertension [Unknown]
  - Product use issue [Unknown]
